FAERS Safety Report 10093185 (Version 1)
Quarter: 2014Q2

REPORT INFORMATION
  Report Type: Spontaneous
  Country: US (occurrence: US)
  Receive Date: 20140421
  Receipt Date: 20140421
  Transmission Date: 20141212
  Serious: No
  Sender: FDA-Public Use
  Company Number: US-SA-2013SA101316

PATIENT
  Age: 51 Year
  Sex: Female

DRUGS (1)
  1. ALLEGRA [Suspect]
     Indication: HYPERSENSITIVITY
     Route: 048
     Dates: start: 2013

REACTIONS (4)
  - Gastrointestinal disorder [Recovered/Resolved]
  - Mental impairment [Recovered/Resolved]
  - Eczema [Recovered/Resolved]
  - Dyspnoea [Recovered/Resolved]
